FAERS Safety Report 16140194 (Version 1)
Quarter: 2019Q1

REPORT INFORMATION
  Report Type: Spontaneous
  Country: US (occurrence: US)
  Receive Date: 20190226
  Receipt Date: 20190226
  Transmission Date: 20190418
  Serious: Yes (Other)
  Sender: FDA-Public Use
  Company Number: None

PATIENT
  Age: 60 Year
  Sex: Male
  Weight: 80.29 kg

DRUGS (1)
  1. CRESTOR [Suspect]
     Active Substance: ROSUVASTATIN CALCIUM
     Indication: VASCULAR DEVICE USER
     Dates: start: 20160606, end: 201609

REACTIONS (4)
  - Product substitution issue [None]
  - Myalgia [None]
  - Muscle spasms [None]
  - Feeling abnormal [None]

NARRATIVE: CASE EVENT DATE: 20160606
